FAERS Safety Report 17374168 (Version 2)
Quarter: 2020Q1

REPORT INFORMATION
  Report Type: Spontaneous
  Country: ES (occurrence: ES)
  Receive Date: 20200205
  Receipt Date: 20200223
  Transmission Date: 20200409
  Serious: No
  Sender: FDA-Public Use
  Company Number: ES-ROCHE-2532361

PATIENT
  Age: 31 Year
  Sex: Female

DRUGS (2)
  1. TOCILIZUMAB. [Suspect]
     Active Substance: TOCILIZUMAB
     Indication: UVEITIS
     Route: 058
     Dates: start: 20191024, end: 20191210
  2. TOCILIZUMAB. [Suspect]
     Active Substance: TOCILIZUMAB
     Indication: UVEITIS
     Route: 042
     Dates: start: 20200109

REACTIONS (6)
  - Off label use [Unknown]
  - Intentional product use issue [Unknown]
  - Injection site urticaria [Unknown]
  - Dermatitis allergic [Recovered/Resolved]
  - Injection site pruritus [Unknown]
  - Injection site erythema [Unknown]

NARRATIVE: CASE EVENT DATE: 201912
